FAERS Safety Report 14773927 (Version 1)
Quarter: 2018Q2

REPORT INFORMATION
  Report Type: Spontaneous
  Country: US (occurrence: US)
  Receive Date: 20180418
  Receipt Date: 20180418
  Transmission Date: 20180711
  Serious: No
  Sender: FDA-Public Use
  Company Number: US-009507513-1804USA005129

PATIENT
  Age: 38 Year
  Sex: Female

DRUGS (1)
  1. DESLORATADINE. [Suspect]
     Active Substance: DESLORATADINE
     Indication: SEASONAL ALLERGY
     Dosage: 2-3 YEARS AGO; 1 DF, QD; SWALLOWED WITH WATER
     Route: 048
     Dates: start: 2015

REACTIONS (1)
  - Drug ineffective [Recovered/Resolved]
